FAERS Safety Report 7427158-4 (Version None)
Quarter: 2011Q2

REPORT INFORMATION
  Report Type: 
  Country: None (occurrence: None)
  Receive Date: 20110420
  Receipt Date: 20110412
  Transmission Date: 20111010
  Serious: Yes (Other)
  Sender: FDA-Public Use
  Company Number: US-CEPHALON-2011001821

PATIENT
  Sex: Female
  Weight: 109 kg

DRUGS (6)
  1. LITHIUM [Concomitant]
     Dates: start: 20110101
  2. MOBIC [Concomitant]
  3. NUVIGIL [Suspect]
     Indication: ASTHENIA
     Route: 048
     Dates: start: 20110201, end: 20110408
  4. TRICOR [Concomitant]
  5. GEODON [Concomitant]
  6. AMBIEN [Concomitant]

REACTIONS (4)
  - DRUG WITHDRAWAL SYNDROME [None]
  - CONFUSIONAL STATE [None]
  - NAUSEA [None]
  - TREMOR [None]
